FAERS Safety Report 8989252 (Version 3)
Quarter: 2013Q2

REPORT INFORMATION
  Report Type: Spontaneous
  Country: US (occurrence: US)
  Receive Date: 20121227
  Receipt Date: 20130403
  Transmission Date: 20140414
  Serious: No
  Sender: FDA-Public Use
  Company Number: US-009507513-1212USA009609

PATIENT
  Age: 93 Year
  Sex: Female

DRUGS (3)
  1. DORZOLAMIDE HYDROCHLORIDE (+) TIMOLOL MALEATE [Suspect]
     Indication: GLAUCOMA
     Dosage: 1 GTT, BID IN EACH EYE
     Route: 047
     Dates: start: 2011, end: 2012
  2. COSOPT [Suspect]
     Indication: GLAUCOMA
     Dosage: 1 GTT, BID IN EACH EYE
     Route: 047
     Dates: start: 20121129, end: 20121202
  3. SPIRIVA [Concomitant]

REACTIONS (1)
  - No adverse event [Unknown]
